FAERS Safety Report 24207312 (Version 2)
Quarter: 2024Q3

REPORT INFORMATION
  Report Type: Spontaneous
  Country: US (occurrence: US)
  Receive Date: 20240813
  Receipt Date: 20240930
  Transmission Date: 20241016
  Serious: No
  Sender: SANOFI AVENTIS
  Company Number: US-SANOFI-02173610

PATIENT
  Age: 74 Year
  Sex: Female
  Weight: 90 kg

DRUGS (2)
  1. LANTUS SOLOSTAR [Suspect]
     Active Substance: INSULIN GLARGINE
     Indication: Type 2 diabetes mellitus
     Dosage: BID (10 UNITS IN THE MORNING AND 50 UNITS IN THE EVENING)
  2. LANTUS SOLOSTAR [Suspect]
     Active Substance: INSULIN GLARGINE
     Dosage: 20 UNIT IN MORNING AND 50 UNIT IN EVENING, BID

REACTIONS (1)
  - Inappropriate schedule of product administration [Unknown]
